FAERS Safety Report 23350451 (Version 5)
Quarter: 2024Q1

REPORT INFORMATION
  Report Type: Report from Study
  Country: US (occurrence: US)
  Receive Date: 20231229
  Receipt Date: 20240216
  Transmission Date: 20240410
  Serious: Yes (Hospitalization, Other)
  Sender: FDA-Public Use
  Company Number: US-002147023-NVSC2023US274857

PATIENT
  Age: 63 Year
  Sex: Male
  Weight: 85 kg

DRUGS (16)
  1. ILARIS [Suspect]
     Active Substance: CANAKINUMAB
     Indication: Pancreatic carcinoma metastatic
     Dosage: 250 MG, QMO
     Route: 058
     Dates: start: 20230216, end: 20230420
  2. ILARIS [Suspect]
     Active Substance: CANAKINUMAB
     Dosage: 250 MG
     Route: 058
     Dates: start: 20230316, end: 20230420
  3. ILARIS [Suspect]
     Active Substance: CANAKINUMAB
     Dosage: 250 MG, QMO
     Route: 058
     Dates: start: 20230427
  4. ILARIS [Suspect]
     Active Substance: CANAKINUMAB
     Dosage: 250 MG, QMO
     Route: 042
     Dates: start: 20230928
  5. GEMZAR [Suspect]
     Active Substance: GEMCITABINE HYDROCHLORIDE
     Indication: Product used for unknown indication
     Dosage: 1000 MG/M2 (3 WEEKS ON, 1 WEEK OFF)
     Route: 042
     Dates: start: 20230216
  6. GEMZAR [Suspect]
     Active Substance: GEMCITABINE HYDROCHLORIDE
     Dosage: 125 MG/M2 3 WEEKS ON, 1 WEEK OFF
     Route: 042
     Dates: start: 20230330, end: 20230420
  7. GEMZAR [Suspect]
     Active Substance: GEMCITABINE HYDROCHLORIDE
     Dosage: 125 MG/M2 3 WEEKS ON, 1 WEEK OFF
     Route: 042
     Dates: start: 20230427
  8. GEMZAR [Suspect]
     Active Substance: GEMCITABINE HYDROCHLORIDE
     Dosage: 600 MG/M2 ((3 WEEKS ON, 1 WEEK OFF))
     Route: 042
     Dates: start: 20230928, end: 20231011
  9. GEMZAR [Suspect]
     Active Substance: GEMCITABINE HYDROCHLORIDE
     Dosage: UNK
     Route: 065
     Dates: start: 20231019
  10. ABRAXANE [Suspect]
     Active Substance: PACLITAXEL
     Indication: Product used for unknown indication
     Dosage: 125 MG/M2 ((3 WEEKS ON, 1 WEEK OFF))
     Route: 065
     Dates: start: 20230216
  11. ABRAXANE [Suspect]
     Active Substance: PACLITAXEL
     Dosage: 1000 MG/M2  3 WEEKS ON, 1 WEEK OFF
     Route: 065
     Dates: start: 20230330, end: 20230420
  12. ABRAXANE [Suspect]
     Active Substance: PACLITAXEL
     Dosage: 125 MG/M2 ((3 WEEKS ON, 1 WEEK OFF))
     Route: 065
     Dates: start: 20230427
  13. ABRAXANE [Suspect]
     Active Substance: PACLITAXEL
     Dosage: 75 MG/M2 (3 WEEKS ON, 1 WEEK OFF)
     Route: 042
     Dates: start: 20230928, end: 20231011
  14. ABRAXANE [Suspect]
     Active Substance: PACLITAXEL
     Dosage: UNK
     Route: 065
     Dates: start: 20231019
  15. CREON [Concomitant]
     Active Substance: PANCRELIPASE AMYLASE\PANCRELIPASE LIPASE\PANCRELIPASE PROTEASE
     Indication: Pancreatic failure
     Dosage: 72000 USP, PRN
     Route: 048
     Dates: start: 20230216
  16. ZOSYN [Concomitant]
     Active Substance: PIPERACILLIN SODIUM\TAZOBACTAM SODIUM
     Indication: Infection
     Dosage: 4.5 MG, Q6H
     Route: 042

REACTIONS (2)
  - Hepatic infection [Recovered/Resolved]
  - Biliary tract infection [Recovered/Resolved]

NARRATIVE: CASE EVENT DATE: 20230417
